FAERS Safety Report 25483097 (Version 1)
Quarter: 2025Q2

REPORT INFORMATION
  Report Type: Spontaneous
  Country: US (occurrence: US)
  Receive Date: 20250626
  Receipt Date: 20250626
  Transmission Date: 20250717
  Serious: No
  Sender: APOTEX
  Company Number: US-APOTEX-2025AP008368

PATIENT
  Age: 31 Year
  Sex: Male

DRUGS (17)
  1. RISPERIDONE [Interacting]
     Active Substance: RISPERIDONE
     Indication: Affective disorder
     Dosage: 0.5 MILLIGRAM, BID
     Route: 065
     Dates: start: 202307
  2. RISPERIDONE [Interacting]
     Active Substance: RISPERIDONE
     Dosage: 1.5 MILLIGRAM, QD (0.5 MG IN MORNING AND 1 MG AT NIGHT)
     Route: 065
  3. RISPERIDONE [Interacting]
     Active Substance: RISPERIDONE
     Dosage: 1 MILLIGRAM, BID
     Route: 065
  4. RISPERIDONE [Interacting]
     Active Substance: RISPERIDONE
     Dosage: 0.25 MILLIGRAM, QD
     Route: 065
  5. MODAFINIL [Interacting]
     Active Substance: MODAFINIL
     Indication: Somnolence
     Dosage: 100 MILLIGRAM, Q.AM
     Route: 065
     Dates: end: 2024
  6. DIVALPROEX SODIUM [Interacting]
     Active Substance: DIVALPROEX SODIUM
     Indication: Aggression
     Dosage: 625 MILLIGRAM, BID
     Route: 065
  7. DIVALPROEX SODIUM [Interacting]
     Active Substance: DIVALPROEX SODIUM
     Indication: Affective disorder
     Dosage: 500 MILLIGRAM, BID
     Route: 065
  8. CLONAZEPAM [Suspect]
     Active Substance: CLONAZEPAM
     Indication: Anxiety
     Dosage: 0.75 MILLIGRAM, QD (0.25 MG IN MORNING AND 0.5 MG AT BEDTIME)
     Route: 065
  9. CLONAZEPAM [Suspect]
     Active Substance: CLONAZEPAM
     Dosage: 0.5 MILLIGRAM, BID
     Route: 065
  10. CLONIDINE [Interacting]
     Active Substance: CLONIDINE
     Indication: Anxiety
     Dosage: 0.1 MILLIGRAM, Q.H.S.
     Route: 065
  11. CLONIDINE [Interacting]
     Active Substance: CLONIDINE
     Dosage: 0.05 MILLIGRAM, TID
     Route: 065
  12. SERTRALINE [Interacting]
     Active Substance: SERTRALINE HYDROCHLORIDE
     Indication: Anxiety
     Dosage: 25 MILLIGRAM, QD
     Route: 065
  13. SERTRALINE [Interacting]
     Active Substance: SERTRALINE HYDROCHLORIDE
     Dosage: 200 MILLIGRAM, QD
     Route: 065
  14. SERTRALINE [Interacting]
     Active Substance: SERTRALINE HYDROCHLORIDE
     Dosage: 100 MILLIGRAM, QD
     Route: 065
  15. LITHIUM [Concomitant]
     Active Substance: LITHIUM
     Indication: Aggression
     Dosage: 750 MILLIGRAM, QD
     Route: 065
  16. LITHIUM [Concomitant]
     Active Substance: LITHIUM
     Indication: Affective disorder
     Dosage: 600 MILLIGRAM, QD
     Route: 065
  17. LITHIUM [Concomitant]
     Active Substance: LITHIUM
     Dosage: 1500 MILLIGRAM, QD (900 MG IN THE MORNING AND 600 MG AT DINNERTIME)
     Route: 065

REACTIONS (2)
  - Drug interaction [Unknown]
  - Drug ineffective [Unknown]
